FAERS Safety Report 16196401 (Version 1)
Quarter: 2019Q2

REPORT INFORMATION
  Report Type: Other
  Country: GB (occurrence: GB)
  Receive Date: 20190415
  Receipt Date: 20190415
  Transmission Date: 20190711
  Serious: Yes (Hospitalization, Other)
  Sender: FDA-Public Use
  Company Number: GB-ASTELLAS-2019US015682

PATIENT
  Age: 59 Year
  Sex: Female
  Weight: 114 kg

DRUGS (4)
  1. APIXABAN [Concomitant]
     Active Substance: APIXABAN
     Indication: PRODUCT USED FOR UNKNOWN INDICATION
     Dosage: UNK UNK, UNKNOWN FREQ.
     Route: 065
  2. RAMIPRIL. [Concomitant]
     Active Substance: RAMIPRIL
     Indication: PRODUCT USED FOR UNKNOWN INDICATION
     Dosage: UNK, UNKNOWN FREQ.
     Route: 065
  3. BETMIGA [Suspect]
     Active Substance: MIRABEGRON
     Indication: HYPERTONIC BLADDER
     Route: 048
     Dates: start: 20161212, end: 20181214
  4. ATORVASTATIN [Concomitant]
     Active Substance: ATORVASTATIN
     Indication: PRODUCT USED FOR UNKNOWN INDICATION
     Dosage: UNK, UNKNOWN FREQ.
     Route: 065

REACTIONS (8)
  - Paraesthesia [Unknown]
  - Cerebrovascular accident [Recovered/Resolved with Sequelae]
  - Cardiac flutter [Recovered/Resolved]
  - Presyncope [Unknown]
  - Atrial fibrillation [Recovered/Resolved with Sequelae]
  - Hypoaesthesia [Unknown]
  - Heart rate irregular [Not Recovered/Not Resolved]
  - Palpitations [Not Recovered/Not Resolved]

NARRATIVE: CASE EVENT DATE: 201704
